FAERS Safety Report 9833412 (Version 1)
Quarter: 2014Q1

REPORT INFORMATION
  Report Type: Spontaneous
  Country: JP (occurrence: JP)
  Receive Date: 20140121
  Receipt Date: 20140121
  Transmission Date: 20141002
  Serious: Yes (Hospitalization)
  Sender: FDA-Public Use
  Company Number: JP-009507513-1401JPN008812

PATIENT
  Age: 56 Year
  Sex: Female

DRUGS (3)
  1. SULINDAC [Suspect]
     Dosage: UNK
     Route: 048
     Dates: start: 201303, end: 201304
  2. DEZOLAM [Suspect]
  3. CALONAL [Suspect]

REACTIONS (1)
  - Drug reaction with eosinophilia and systemic symptoms [Unknown]
